FAERS Safety Report 6564739-4 (Version None)
Quarter: 2010Q1

REPORT INFORMATION
  Report Type: 
  Country: None (occurrence: None)
  Receive Date: 20100201
  Receipt Date: 20100126
  Transmission Date: 20100710
  Serious: Yes (Death, Life-Threatening, Hospitalization, Other)
  Sender: FDA-Public Use
  Company Number: GB-BAYER-201011896GPV

PATIENT
  Age: 61 Year
  Sex: Male
  Weight: 49 kg

DRUGS (6)
  1. ACETYLSALICYLIC ACID [Suspect]
     Indication: CARDIOVASCULAR EVENT PROPHYLAXIS
     Route: 048
     Dates: start: 20090617, end: 20091224
  2. CO-CODAMOL 30/500 [Concomitant]
     Indication: INTERVERTEBRAL DISC DEGENERATION
     Dosage: 240MG + 4000MG
     Route: 048
     Dates: start: 20090602
  3. FLUOXETINE HYDROCHLORIDE [Concomitant]
     Indication: DEPRESSION
     Route: 048
     Dates: start: 20040112
  4. FLUTICASONE + SALMETEROL INHALER [Concomitant]
     Indication: CHRONIC OBSTRUCTIVE PULMONARY DISEASE
     Dosage: 500MCG + 100MCG
     Route: 055
     Dates: start: 20090602
  5. IPRATROPIUM BROMIDE [Concomitant]
     Indication: CHRONIC OBSTRUCTIVE PULMONARY DISEASE
     Route: 055
     Dates: start: 20090330
  6. VENTOLIN EVOHALER 100MCG / PUFF [Concomitant]
     Indication: CHRONIC OBSTRUCTIVE PULMONARY DISEASE
     Dosage: 100MCG PUFF
     Route: 055
     Dates: start: 20090201

REACTIONS (3)
  - GASTROINTESTINAL HAEMORRHAGE [None]
  - PANCREATITIS [None]
  - PNEUMONIA [None]
